FAERS Safety Report 11448061 (Version 1)
Quarter: 2015Q3

REPORT INFORMATION
  Report Type: Spontaneous
  Country: US (occurrence: US)
  Receive Date: 20150831
  Receipt Date: 20150831
  Transmission Date: 20151125
  Serious: No
  Sender: FDA-Public Use
  Company Number: US-ELI_LILLY_AND_COMPANY-US200905005286

PATIENT
  Age: 65 Year
  Sex: Female

DRUGS (4)
  1. CYMBALTA [Suspect]
     Active Substance: DULOXETINE HYDROCHLORIDE
     Indication: ANXIETY
     Dosage: 60 MG, DAILY (1/D)
     Dates: start: 20051108
  2. BAYER ASPIRIN [Concomitant]
     Active Substance: ASPIRIN
     Dates: end: 200905
  3. VITAMINS NOS [Concomitant]
     Active Substance: VITAMINS
     Dates: end: 200905
  4. CALCIUM [Concomitant]
     Active Substance: CALCIUM

REACTIONS (5)
  - Nerve injury [Unknown]
  - Scab [Unknown]
  - Rash [Recovering/Resolving]
  - Intervertebral disc disorder [Unknown]
  - Meniscus injury [Recovered/Resolved]

NARRATIVE: CASE EVENT DATE: 200712
